FAERS Safety Report 14159239 (Version 1)
Quarter: 2017Q4

REPORT INFORMATION
  Report Type: Spontaneous
  Country: IT (occurrence: IT)
  Receive Date: 20171103
  Receipt Date: 20171103
  Transmission Date: 20180321
  Serious: Yes (Other)
  Sender: FDA-Public Use
  Company Number: IT-MYLANLABS-2017M1068534

PATIENT
  Age: 81 Year
  Sex: Female

DRUGS (1)
  1. PANTOPRAZOLE [Suspect]
     Active Substance: PANTOPRAZOLE
     Indication: PRODUCT USED FOR UNKNOWN INDICATION

REACTIONS (4)
  - Delusion [Recovered/Resolved]
  - Electrocardiogram QT prolonged [Recovered/Resolved]
  - Supraventricular tachycardia [Recovered/Resolved]
  - Hypomagnesaemia [Recovered/Resolved]
